FAERS Safety Report 14705483 (Version 2)
Quarter: 2018Q3

REPORT INFORMATION
  Report Type: Report from Study
  Country: None (occurrence: DE)
  Receive Date: 20180402
  Receipt Date: 20180919
  Transmission Date: 20181010
  Serious: Yes (Hospitalization, Other)
  Sender: FDA-Public Use
  Company Number: DE-BAUSCH-BL-2018-008103

PATIENT
  Sex: Male
  Weight: 73 kg

DRUGS (11)
  1. DEXAMETHASONE. [Suspect]
     Active Substance: DEXAMETHASONE
     Route: 065
     Dates: start: 20180117, end: 20180118
  2. DEXAMETHASONE. [Suspect]
     Active Substance: DEXAMETHASONE
     Route: 065
     Dates: start: 20180124, end: 20180125
  3. PANTOPRAZOL [Concomitant]
     Active Substance: PANTOPRAZOLE SODIUM
     Dosage: 40 MG, PER CYCLE
     Route: 065
     Dates: start: 20180212
  4. CARFILZOMIB [Suspect]
     Active Substance: CARFILZOMIB
     Dosage: 20 MG/M2, (ON DAYS 1, 2, 8, 9, 15 AND 16)
     Route: 042
     Dates: start: 20180110, end: 20180111
  5. ACICLOVIR [Concomitant]
     Active Substance: ACYCLOVIR
     Indication: PROPHYLAXIS
     Dosage: 400 MG, (1?0?0)
     Route: 065
     Dates: start: 20180110
  6. DEXAMETHASONE. [Suspect]
     Active Substance: DEXAMETHASONE
     Indication: PLASMA CELL MYELOMA
     Route: 065
     Dates: start: 20180131, end: 20180201
  7. DEXAMETHASONE. [Suspect]
     Active Substance: DEXAMETHASONE
     Route: 065
     Dates: start: 20180110, end: 20180111
  8. CARFILZOMIB [Suspect]
     Active Substance: CARFILZOMIB
     Dosage: 56 MG/M2, (ON DAYS 1, 2, 8, 9, 15 AND 16)
     Route: 042
     Dates: start: 20180124, end: 20180125
  9. CARFILZOMIB [Suspect]
     Active Substance: CARFILZOMIB
     Indication: PLASMA CELL MYELOMA
     Dosage: 56 MG/M2, (ON DAYS 1, 2, 8, 9, 15 AND 16)
     Route: 042
     Dates: start: 20180117, end: 20180118
  10. PANTOPRAZOL [Concomitant]
     Active Substance: PANTOPRAZOLE SODIUM
     Indication: PROPHYLAXIS
     Dosage: 40 MG, (1?0?0)
     Route: 065
     Dates: start: 20180110, end: 20180201
  11. ZOMETA [Concomitant]
     Active Substance: ZOLEDRONIC ACID
     Indication: PROPHYLAXIS
     Dosage: 4 MG, QMO ONE MONTH
     Route: 065
     Dates: start: 20180108

REACTIONS (2)
  - Fatigue [Recovered/Resolved]
  - Cardiac failure [Recovered/Resolved]

NARRATIVE: CASE EVENT DATE: 20180119
